FAERS Safety Report 8507740-3 (Version None)
Quarter: 2012Q3

REPORT INFORMATION
  Report Type: 
  Country: None (occurrence: None)
  Receive Date: 20120709
  Receipt Date: 20120709
  Transmission Date: 20120928
  Serious: Yes (Hospitalization)
  Sender: FDA-Public Use
  Company Number: None

PATIENT
  Age: 62 Year
  Sex: Male

DRUGS (1)
  1. NORVIR [Suspect]
     Dosage: NORVIR 100MG DAILY PO
     Route: 048
     Dates: start: 20120321

REACTIONS (1)
  - NEPHROLITHIASIS [None]
